FAERS Safety Report 6880985-4 (Version None)
Quarter: 2010Q2

REPORT INFORMATION
  Report Type: 
  Country: None (occurrence: None)
  Receive Date: 20100630
  Receipt Date: 20091124
  Transmission Date: 20101027
  Serious: Yes (Other)
  Sender: FDA-Public Use
  Company Number: 2009302987

PATIENT
  Age: 82 Year
  Sex: Male

DRUGS (3)
  1. ZITHROMAX [Suspect]
     Indication: PNEUMONIA
     Dosage: 500 MG, 1X/DAY, ORAL
     Route: 048
     Dates: start: 20091123
  2. PREDNISONE [Concomitant]
  3. CEFDINIR [Concomitant]

REACTIONS (1)
  - DEAFNESS [None]
